FAERS Safety Report 17002502 (Version 1)
Quarter: 2019Q4

REPORT INFORMATION
  Report Type: Spontaneous
  Country: NL (occurrence: NL)
  Receive Date: 20191107
  Receipt Date: 20191107
  Transmission Date: 20200122
  Serious: Yes (Other)
  Sender: FDA-Public Use
  Company Number: NL-ADVANZ PHARMA-201910001470

PATIENT

DRUGS (1)
  1. METOPROLOL , HYDROCHLOROTHIAZIDE (HYDROCHLOROTHIAZIDE\METOPROLOL SUCCINATE) [Suspect]
     Active Substance: HYDROCHLOROTHIAZIDE\METOPROLOL SUCCINATE
     Indication: PRODUCT USED FOR UNKNOWN INDICATION
     Dosage: 100 MG TABLET CONTR REL
     Route: 048
     Dates: start: 2011

REACTIONS (1)
  - Drug dependence [Unknown]
